FAERS Safety Report 6796309-7 (Version None)
Quarter: 2010Q2

REPORT INFORMATION
  Report Type: 
  Country: None (occurrence: None)
  Receive Date: 20100624
  Receipt Date: 20100624
  Transmission Date: 20101027
  Serious: Yes (Other)
  Sender: FDA-Public Use
  Company Number: None

PATIENT
  Age: 46 Year
  Sex: Female

DRUGS (1)
  1. SPIRONOLACTONE [Suspect]
     Indication: PULMONARY HYPERTENSION
     Dosage: 25MG BID PO
     Route: 048
     Dates: start: 20100501, end: 20100601

REACTIONS (2)
  - PRODUCT SUBSTITUTION ISSUE [None]
  - WEIGHT INCREASED [None]
